FAERS Safety Report 25591499 (Version 1)
Quarter: 2025Q3

REPORT INFORMATION
  Report Type: Spontaneous
  Country: US (occurrence: US)
  Receive Date: 20250722
  Receipt Date: 20250722
  Transmission Date: 20251021
  Serious: Yes (Other)
  Sender: TEVA
  Company Number: US-TEVA-VS-3290425

PATIENT
  Age: 63 Year
  Sex: Male

DRUGS (2)
  1. DIAZOXIDE [Suspect]
     Active Substance: DIAZOXIDE
     Indication: Diabetes mellitus management
     Route: 065
  2. PASIREOTIDE [Suspect]
     Active Substance: PASIREOTIDE
     Indication: Diabetes mellitus management
     Route: 065

REACTIONS (2)
  - Small intestinal obstruction [Unknown]
  - Off label use [Unknown]
